FAERS Safety Report 5862411-7 (Version None)
Quarter: 2008Q3

REPORT INFORMATION
  Report Type: 
  Country: None (occurrence: None)
  Receive Date: 20080828
  Receipt Date: 20080818
  Transmission Date: 20090109
  Serious: Yes (Other)
  Sender: FDA-Public Use
  Company Number: US-ROCHE-581442

PATIENT
  Sex: Female

DRUGS (1)
  1. CAPECITABINE [Suspect]
     Dosage: DOSAGE RECEIVED 3 IN AM AND 2 IN PM, EVERY OTHER WEEK
     Route: 065

REACTIONS (2)
  - DISEASE PROGRESSION [None]
  - DRUG INEFFECTIVE [None]
